FAERS Safety Report 6184392-1 (Version None)
Quarter: 2009Q2

REPORT INFORMATION
  Report Type: 
  Country: None (occurrence: None)
  Receive Date: 20090508
  Receipt Date: 20090427
  Transmission Date: 20091009
  Serious: Yes (Hospitalization)
  Sender: FDA-Public Use
  Company Number: B0560020A

PATIENT
  Sex: Female
  Weight: 65 kg

DRUGS (5)
  1. SERETIDE [Suspect]
     Indication: ASTHMA
     Dosage: 2PUFF TWICE PER DAY
     Route: 055
     Dates: start: 20030101
  2. VENTOLIN [Suspect]
     Indication: ASTHMA
     Dosage: 100MCG AS REQUIRED
     Route: 055
  3. AZOPT [Suspect]
     Indication: GLAUCOMA
     Route: 065
  4. XALATAN [Suspect]
     Indication: GLAUCOMA
     Route: 065
  5. PARACETAMOL [Concomitant]
     Route: 048

REACTIONS (1)
  - NASOPHARYNGITIS [None]
